FAERS Safety Report 5851737-9 (Version None)
Quarter: 2008Q3

REPORT INFORMATION
  Report Type: 
  Country: None (occurrence: None)
  Receive Date: 20080820
  Receipt Date: 20080812
  Transmission Date: 20090109
  Serious: Yes (Hospitalization)
  Sender: FDA-Public Use
  Company Number: PHHY2008US13748

PATIENT
  Sex: Female

DRUGS (20)
  1. RECLAST [Suspect]
     Indication: OSTEOPOROSIS
     Dosage: 5 MG, ONCE/SINGLE
     Route: 042
     Dates: start: 20080626
  2. PREVACID [Concomitant]
     Dosage: 1 Q.A.M.
  3. MIRAPEX [Concomitant]
     Dosage: 0.5 UNK, TID
     Route: 048
  4. ADVAIR DISKUS 100/50 [Concomitant]
  5. FISH OIL [Concomitant]
  6. CALCIUM [Concomitant]
     Dosage: 1000 MG, TID
     Route: 048
  7. VITAMIN E [Concomitant]
  8. MAGNESIUM SULFATE [Concomitant]
  9. NEURONTIN [Concomitant]
     Dosage: 300 IN THE DAY AND 900 IN THE NIGHT
  10. CYMBALTA [Concomitant]
     Dosage: 600 Q.A.M.
  11. KLONOPIN [Concomitant]
     Dosage: 1 MG A.M., 3 MG AT BEDTIME
  12. ZYPREXA [Concomitant]
     Dosage: 5 MG, QHS
     Route: 048
  13. PHENERGAN HCL [Concomitant]
     Dosage: P.R.N.
  14. ALLEGRA [Concomitant]
  15. HYDROCHLOROTHIAZIDE [Concomitant]
     Dosage: 12.5 MG, QD
  16. TRIAMTERENE [Concomitant]
  17. COLACE [Concomitant]
  18. AMBIEN [Concomitant]
     Dosage: 10 G
  19. PEROCET [Concomitant]
  20. ERGOCALCIFEROL [Concomitant]

REACTIONS (6)
  - BLOOD CALCIUM DECREASED [None]
  - BLOOD CREATININE INCREASED [None]
  - BODY TEMPERATURE INCREASED [None]
  - FACIAL SPASM [None]
  - GRAND MAL CONVULSION [None]
  - MYALGIA [None]
